FAERS Safety Report 4484904-X (Version None)
Quarter: 2004Q3

REPORT INFORMATION
  Report Type: 
  Country: None (occurrence: None)
  Receive Date: 20040921
  Receipt Date: 20040223
  Transmission Date: 20050211
  Serious: Yes (Hospitalization)
  Sender: FDA-Public Use
  Company Number: 163-20785-04020617

PATIENT
  Age: 54 Year
  Sex: Male
  Weight: 84 kg

DRUGS (9)
  1. THALOMID [Suspect]
     Indication: CHRONIC LYMPHOCYTIC LEUKAEMIA
     Dosage: 100-300 MG, DAILY, ORAL
     Route: 048
     Dates: end: 20040219
  2. FLUDARABINE PHOSPHATE [Suspect]
     Indication: CHRONIC LYMPHOCYTIC LEUKAEMIA
     Dosage: 25 MG/M2, EVERY 28 DAYS, INTRAVENOUS
     Route: 042
     Dates: end: 20040223
  3. SYNTHROID [Concomitant]
  4. MVI (MULTIVITAMINS) (TABLETS) [Concomitant]
  5. NEXIUM [Concomitant]
  6. IRON (IRON) [Concomitant]
  7. COLACE (DOCUSATE SODIUM) (CAPSULES) [Concomitant]
  8. SENOKOT (SENNA FRUIT) (TABLETS) [Concomitant]
  9. COUMADIN [Concomitant]

REACTIONS (2)
  - DYSPNOEA [None]
  - FEBRILE NEUTROPENIA [None]
